FAERS Safety Report 4497117-2 (Version None)
Quarter: 2004Q3

REPORT INFORMATION
  Report Type: 
  Country: None (occurrence: None)
  Receive Date: 20040927
  Receipt Date: 20040525
  Transmission Date: 20050211
  Serious: No
  Sender: FDA-Public Use
  Company Number: USA040568572

PATIENT
  Age: 66 Year
  Sex: Male
  Weight: 100 kg

DRUGS (2)
  1. STRATTERA [Suspect]
     Dosage: 40 MG DAY
     Dates: start: 20040516
  2. ARTIFICIAL TEARS [Concomitant]

REACTIONS (4)
  - ABNORMAL BEHAVIOUR [None]
  - FEELING ABNORMAL [None]
  - FEELING DRUNK [None]
  - THOUGHT BLOCKING [None]
